FAERS Safety Report 6566894-9 (Version None)
Quarter: 2010Q1

REPORT INFORMATION
  Report Type: 
  Country: None (occurrence: None)
  Receive Date: 20100128
  Receipt Date: 20100114
  Transmission Date: 20100710
  Serious: Yes (Hospitalization)
  Sender: FDA-Public Use
  Company Number: A-US2006-11573

PATIENT
  Age: 47 Year
  Sex: Female

DRUGS (4)
  1. TRACLEER [Suspect]
     Indication: PULMONARY ARTERIAL HYPERTENSION
     Dosage: 125 MG, BID, ORAL; 62.5 MG, BID, ORAL
     Route: 048
     Dates: start: 20050301, end: 20091101
  2. TRACLEER [Suspect]
     Indication: PULMONARY ARTERIAL HYPERTENSION
     Dosage: 125 MG, BID, ORAL; 62.5 MG, BID, ORAL
     Route: 048
     Dates: start: 20050301
  3. DIOVAN [Concomitant]
  4. ZOLOFT [Concomitant]

REACTIONS (8)
  - ABDOMINAL DISCOMFORT [None]
  - ARTHRALGIA [None]
  - CYST [None]
  - DYSPEPSIA [None]
  - FLATULENCE [None]
  - NIGHT SWEATS [None]
  - PNEUMONIA [None]
  - SINUSITIS [None]
